FAERS Safety Report 21860451 (Version 1)
Quarter: 2023Q1

REPORT INFORMATION
  Report Type: Spontaneous
  Country: ES (occurrence: ES)
  Receive Date: 20230113
  Receipt Date: 20230113
  Transmission Date: 20230418
  Serious: Yes (Hospitalization)
  Sender: FDA-Public Use
  Company Number: ES-002147023-NVSC2023ES006308

PATIENT
  Age: 4 Year
  Sex: Male

DRUGS (1)
  1. AMOXICILLIN [Suspect]
     Active Substance: AMOXICILLIN
     Indication: Salmonellosis
     Dosage: 117 MG/KG/DOSE (DOSE INGESTED)
     Route: 065

REACTIONS (2)
  - Accidental exposure to product by child [Unknown]
  - Overdose [Unknown]
